FAERS Safety Report 15088085 (Version 5)
Quarter: 2018Q3

REPORT INFORMATION
  Report Type: Spontaneous
  Country: US (occurrence: US)
  Receive Date: 20180629
  Receipt Date: 20180807
  Transmission Date: 20181010
  Serious: Yes (Hospitalization, Disabling)
  Sender: FDA-Public Use
  Company Number: PHEH2018US025792

PATIENT
  Age: 36 Year
  Sex: Female
  Weight: 63.49 kg

DRUGS (1)
  1. GILENYA [Suspect]
     Active Substance: FINGOLIMOD HYDROCHLORIDE
     Indication: MULTIPLE SCLEROSIS
     Dosage: UNK UNK, QD
     Route: 048
     Dates: start: 20170222, end: 20180313

REACTIONS (14)
  - Urinary tract infection [Unknown]
  - Upper respiratory tract infection [Unknown]
  - Ataxia [Unknown]
  - Brain stem syndrome [Unknown]
  - Influenza virus test positive [Unknown]
  - Central nervous system lesion [Unknown]
  - Cognitive disorder [Recovering/Resolving]
  - Confusional state [Unknown]
  - Dysarthria [Unknown]
  - Progressive multifocal leukoencephalopathy [Recovered/Resolved]
  - Aphasia [Recovering/Resolving]
  - Balance disorder [Unknown]
  - Dysphagia [Unknown]
  - Nervous system disorder [Unknown]

NARRATIVE: CASE EVENT DATE: 20180302
